FAERS Safety Report 9648722 (Version 2)
Quarter: 2013Q4

REPORT INFORMATION
  Report Type: Report from Study
  Country: US (occurrence: US)
  Receive Date: 20131028
  Receipt Date: 20131028
  Transmission Date: 20140711
  Serious: Yes (Hospitalization, Disabling)
  Sender: FDA-Public Use
  Company Number: US-ACTELION-A-US2013-89616

PATIENT
  Age: 76 Year
  Sex: Female

DRUGS (41)
  1. TRACLEER [Suspect]
     Indication: PULMONARY ARTERIAL HYPERTENSION
     Dosage: 125 MG, BID
     Route: 048
     Dates: start: 20060106
  2. TRACLEER [Suspect]
     Dosage: 62.5 MG, BID
     Route: 048
     Dates: start: 20050520, end: 20060125
  3. VITAMIN C [Concomitant]
  4. SUCRALFATE [Concomitant]
  5. ALBUTEROL [Concomitant]
  6. PULMICORT [Concomitant]
  7. MAGNESIUM [Concomitant]
  8. HYDROCHLOROTHIAZIDE [Concomitant]
  9. CALCIUM [Concomitant]
  10. IRON [Concomitant]
  11. REMICADE [Concomitant]
  12. FISH OIL [Concomitant]
  13. NEUROTIN [Concomitant]
  14. ZYRTEC [Concomitant]
  15. HYDROCODONE W/APAP [Concomitant]
  16. LASIX [Concomitant]
  17. KCL [Concomitant]
  18. VITAMIN B1 [Concomitant]
  19. VITAMIN D [Concomitant]
     Dosage: 50,000 UNITS WEEKLY
     Dates: start: 2005
  20. CYMBALTA [Concomitant]
  21. SIMVASTATIN [Concomitant]
  22. PLAQUENIL [Concomitant]
  23. SULFASALAZINE [Concomitant]
  24. CLONIDINE [Concomitant]
  25. TRAMADOL [Concomitant]
  26. AMBIEN [Concomitant]
  27. RANITIDINE [Concomitant]
  28. HYDROXYZINE [Concomitant]
  29. ALLOPURINOL [Concomitant]
  30. PENTOXIFYLLINE [Concomitant]
  31. NEXIUM [Concomitant]
  32. ATENOLOL [Concomitant]
  33. METHOCARBAMOL [Concomitant]
  34. LYRICA [Concomitant]
  35. LISINOPRIL [Concomitant]
  36. ASPIRIN [Concomitant]
  37. SPIRONOLACTONE [Concomitant]
  38. FEXOFENADINE [Concomitant]
  39. METHOTREXATE [Concomitant]
  40. CARBIDOPA [Concomitant]
  41. GAMMAGARD [Concomitant]

REACTIONS (6)
  - Blood magnesium decreased [Recovering/Resolving]
  - Blood potassium decreased [Recovering/Resolving]
  - Hypertension [Recovering/Resolving]
  - Red blood cell count decreased [Recovering/Resolving]
  - Anaemia [Recovering/Resolving]
  - Transfusion [Recovering/Resolving]
